FAERS Safety Report 13077108 (Version 1)
Quarter: 2016Q4

REPORT INFORMATION
  Report Type: Spontaneous
  Country: US (occurrence: US)
  Receive Date: 20161230
  Receipt Date: 20161230
  Transmission Date: 20170207
  Serious: No
  Sender: FDA-Public Use
  Company Number: US-DRREDDYS-USA/USA/15/0054466

PATIENT
  Age: 49 Year
  Sex: Male
  Weight: 63 kg

DRUGS (1)
  1. HABITROL [Suspect]
     Active Substance: NICOTINE
     Indication: SMOKING CESSATION THERAPY
     Route: 061
     Dates: start: 20151124

REACTIONS (3)
  - Application site irritation [Recovered/Resolved]
  - Application site erythema [Recovered/Resolved]
  - Vomiting [Recovered/Resolved]
